FAERS Safety Report 17402787 (Version 1)
Quarter: 2020Q1

REPORT INFORMATION
  Report Type: Spontaneous
  Country: US (occurrence: US)
  Receive Date: 20200211
  Receipt Date: 20200211
  Transmission Date: 20200409
  Serious: No
  Sender: FDA-Public Use
  Company Number: US-PFIZER INC-2020055271

PATIENT
  Age: 84 Year
  Sex: Female
  Weight: 83.46 kg

DRUGS (1)
  1. LEVOTHYROXINE SODIUM. [Suspect]
     Active Substance: LEVOTHYROXINE SODIUM
     Indication: THYROID DISORDER
     Dosage: 50 MG, 1X/DAY (50 MG, ONE EVERY MORNING BEFORE EATING, BY MOUTH)
     Route: 048

REACTIONS (2)
  - Weight increased [Unknown]
  - Overdose [Unknown]
